FAERS Safety Report 6912041-0 (Version None)
Quarter: 2010Q3

REPORT INFORMATION
  Report Type: 
  Country: None (occurrence: None)
  Receive Date: 20100806
  Receipt Date: 20071101
  Transmission Date: 20110219
  Serious: No
  Sender: FDA-Public Use
  Company Number: US-PFIZER INC-2007089000

PATIENT
  Sex: Female
  Weight: 81.8 kg

DRUGS (5)
  1. DETROL LA [Suspect]
     Indication: HYPERTONIC BLADDER
     Route: 048
  2. DETROL LA [Suspect]
     Indication: MICTURITION URGENCY
  3. HYZAAR [Concomitant]
     Indication: HYPERTENSION
  4. CADUET [Concomitant]
     Indication: HYPERTENSION
  5. ZOLOFT [Concomitant]
     Indication: DEPRESSION

REACTIONS (4)
  - DRUG EFFECT DECREASED [None]
  - ENURESIS [None]
  - NOCTURIA [None]
  - URINE OUTPUT INCREASED [None]
